FAERS Safety Report 6275706-2 (Version None)
Quarter: 2009Q3

REPORT INFORMATION
  Report Type: 
  Country: None (occurrence: None)
  Receive Date: 20090721
  Receipt Date: 20090709
  Transmission Date: 20100115
  Serious: Yes (Other)
  Sender: FDA-Public Use
  Company Number: PHEH2009US07365

PATIENT
  Sex: Female

DRUGS (3)
  1. DIOVAN [Suspect]
  2. SYNTHROID [Suspect]
  3. ELECTROLYTES NOS [Suspect]

REACTIONS (9)
  - BREAST CANCER [None]
  - CARDIAC DISORDER [None]
  - FEELING ABNORMAL [None]
  - HYPERTENSION [None]
  - LOCAL REACTION [None]
  - MUSCLE SPASMS [None]
  - RENAL DISORDER [None]
  - THROMBOSIS [None]
  - WEIGHT ABNORMAL [None]
